FAERS Safety Report 8538670 (Version 4)
Quarter: 2013Q2

REPORT INFORMATION
  Report Type: Spontaneous
  Country: JP (occurrence: JP)
  Receive Date: 20120501
  Receipt Date: 20130621
  Transmission Date: 20140414
  Serious: Yes (Hospitalization)
  Sender: FDA-Public Use
  Company Number: JP-B.I. PHARMACEUTICALS,INC./RIDGEFIELD-2012-BP-09427NB

PATIENT
  Age: 73 Year
  Sex: Male
  Weight: 66 kg

DRUGS (7)
  1. PRAZAXA [Suspect]
     Indication: ATRIAL FIBRILLATION
     Dosage: 220 MG
     Route: 048
  2. AMLODIPINE [Concomitant]
     Dosage: 2.5 MG
     Route: 065
  3. MAINTATE [Concomitant]
     Dosage: 2.5 MG
     Route: 065
  4. BEPRICOR [Concomitant]
     Indication: SINUS RHYTHM
     Dosage: 150 MG
     Route: 065
     Dates: start: 20120404, end: 20120413
  5. URSO [Concomitant]
     Dosage: 600 MG
     Route: 065
  6. GLYCYRON [Concomitant]
     Route: 065
  7. OLMETEC [Concomitant]
     Dosage: 20 MG
     Route: 065

REACTIONS (5)
  - Transient ischaemic attack [Recovered/Resolved]
  - Lateral medullary syndrome [Recovered/Resolved]
  - Cerebral infarction [Recovered/Resolved]
  - Ischaemic stroke [Recovered/Resolved]
  - Ophthalmoplegia [Recovered/Resolved]
